FAERS Safety Report 24975842 (Version 2)
Quarter: 2025Q1

REPORT INFORMATION
  Report Type: Spontaneous
  Country: US (occurrence: US)
  Receive Date: 20250217
  Receipt Date: 20250226
  Transmission Date: 20250408
  Serious: Yes (Death, Life-Threatening, Hospitalization)
  Sender: TEVA
  Company Number: US-TEVA-VS-3298014

PATIENT
  Age: 80 Year
  Sex: Male

DRUGS (10)
  1. PREDNISONE [Suspect]
     Active Substance: PREDNISONE
     Indication: Myasthenia gravis
     Route: 048
  2. PREDNISONE [Suspect]
     Active Substance: PREDNISONE
     Indication: Myasthenia gravis
     Route: 048
  3. PEMBROLIZUMAB [Suspect]
     Active Substance: PEMBROLIZUMAB
     Indication: Bladder transitional cell carcinoma
     Route: 042
     Dates: start: 2022
  4. ECULIZUMAB [Suspect]
     Active Substance: ECULIZUMAB
     Indication: Myasthenia gravis
     Route: 042
  5. ECULIZUMAB [Suspect]
     Active Substance: ECULIZUMAB
     Indication: Myasthenia gravis
     Route: 042
  6. ECULIZUMAB [Suspect]
     Active Substance: ECULIZUMAB
     Indication: Myasthenia gravis
     Dosage: FOR THREE MORE DOSES
     Route: 042
  7. METHYLPREDNISOLONE [Suspect]
     Active Substance: METHYLPREDNISOLONE
     Indication: Myasthenia gravis
     Route: 042
  8. RAVULIZUMAB [Suspect]
     Active Substance: RAVULIZUMAB
     Indication: Myasthenia gravis
     Route: 042
  9. RAVULIZUMAB [Suspect]
     Active Substance: RAVULIZUMAB
     Indication: Myasthenia gravis
     Dosage: FIRST MAINTENANCE DOSE AT 2?WEEKS WITH IMPROVEMENT
     Route: 042
  10. CEFPODOXIME [Concomitant]
     Active Substance: CEFPODOXIME
     Indication: Prophylaxis

REACTIONS (7)
  - Metastatic neoplasm [Fatal]
  - Myopathy [Unknown]
  - Bladder transitional cell carcinoma [Fatal]
  - Immune-mediated myositis [Unknown]
  - Immune-mediated myocarditis [Unknown]
  - Immune-mediated myasthenia gravis [Recovering/Resolving]
  - Respiratory failure [Unknown]

NARRATIVE: CASE EVENT DATE: 20220101
